FAERS Safety Report 17346107 (Version 1)
Quarter: 2020Q1

REPORT INFORMATION
  Report Type: Spontaneous
  Country: GR (occurrence: GR)
  Receive Date: 20200129
  Receipt Date: 20200129
  Transmission Date: 20200409
  Serious: Yes (Hospitalization, Other)
  Sender: FDA-Public Use
  Company Number: GR-BIOGEN-2020BI00830635

PATIENT
  Age: 10 Month
  Sex: Male

DRUGS (1)
  1. SPINRAZA [Suspect]
     Active Substance: NUSINERSEN
     Indication: SPINAL MUSCULAR ATROPHY
     Route: 037
     Dates: start: 20200114

REACTIONS (2)
  - Pleural thickening [Not Recovered/Not Resolved]
  - Aspiration [Unknown]

NARRATIVE: CASE EVENT DATE: 20200119
